FAERS Safety Report 5780078-3 (Version None)
Quarter: 2008Q2

REPORT INFORMATION
  Report Type: 
  Country: None (occurrence: None)
  Receive Date: 20080620
  Receipt Date: 20080612
  Transmission Date: 20081010
  Serious: Yes (Other)
  Sender: FDA-Public Use
  Company Number: US-ABBOTT-08P-163-0451611-00

PATIENT
  Sex: Female
  Weight: 70.824 kg

DRUGS (14)
  1. HUMIRA [Suspect]
     Indication: RHEUMATOID ARTHRITIS
     Route: 058
     Dates: start: 20060301, end: 20080418
  2. LIOTHYRONINE SODIUM [Concomitant]
     Indication: PARATHYROIDECTOMY
     Dosage: DAILY, AT BEDTIME
     Route: 048
  3. AMLODIPINE [Concomitant]
     Indication: HYPERTENSION
     Route: 048
     Dates: start: 20080426
  4. AMLODIPINE [Concomitant]
     Route: 048
     Dates: end: 20080425
  5. SULINDAC [Concomitant]
     Indication: RHEUMATOID ARTHRITIS
     Route: 048
  6. SULFASALAZINE [Concomitant]
     Indication: RHEUMATOID ARTHRITIS
     Route: 048
     Dates: start: 20050101
  7. HYDROXYCHLOROQUINE SULFATE [Concomitant]
     Indication: RHEUMATOID ARTHRITIS
     Route: 048
  8. METHOTREXATE [Concomitant]
     Indication: RHEUMATOID ARTHRITIS
     Dosage: SIX TABS, WEEKLY, ON WEDNESDAY
     Route: 048
  9. ONE A DAY ESSENTIAL [Concomitant]
     Indication: VITAMIN SUPPLEMENTATION
     Route: 048
  10. ASPIRIN [Concomitant]
     Indication: CARDIOVASCULAR EVENT PROPHYLAXIS
     Dosage: DAILY
     Route: 048
     Dates: start: 20080426
  11. FOLIC ACID [Concomitant]
     Indication: VITAMIN SUPPLEMENTATION
     Dosage: DAILY
     Route: 048
  12. PRAVASTATIN [Concomitant]
     Indication: BLOOD CHOLESTEROL INCREASED
     Dosage: DAILY
     Route: 048
     Dates: start: 20080427
  13. PRAVASTATIN [Concomitant]
  14. CALCIUM WITH VITAMIN D [Concomitant]
     Indication: MINERAL SUPPLEMENTATION
     Dosage: 600MG/400 IU 2 TIMES DAILY
     Route: 048

REACTIONS (8)
  - ASTHENIA [None]
  - BALANCE DISORDER [None]
  - CALCIUM METABOLISM DISORDER [None]
  - CEREBROVASCULAR ACCIDENT [None]
  - DRUG DOSE OMISSION [None]
  - FEELING ABNORMAL [None]
  - HYPERTENSION [None]
  - NASOPHARYNGITIS [None]
